FAERS Safety Report 9410215 (Version 1)
Quarter: 2013Q3

REPORT INFORMATION
  Report Type: Spontaneous
  Country: US (occurrence: US)
  Receive Date: 20130719
  Receipt Date: 20130719
  Transmission Date: 20140515
  Serious: No
  Sender: FDA-Public Use
  Company Number: US-US-EMD SERONO, INC.-7066404

PATIENT
  Age: 55 Year
  Sex: Female

DRUGS (4)
  1. REBIF [Suspect]
     Indication: MULTIPLE SCLEROSIS
     Route: 058
     Dates: start: 20050311
  2. ZOLOFT                             /01011401/ [Concomitant]
     Indication: DEPRESSION
     Dates: start: 200201
  3. HYDROCHLOROTHIAZIDE [Concomitant]
     Indication: BLOOD PRESSURE
     Dates: start: 201009
  4. CRANBERRY                          /01512301/ [Concomitant]
     Indication: BLADDER DISORDER
     Dates: start: 200005

REACTIONS (4)
  - Red blood cell count abnormal [Recovered/Resolved]
  - White blood cell count decreased [Recovered/Resolved]
  - Platelet count abnormal [Recovered/Resolved]
  - Fatigue [Unknown]
